FAERS Safety Report 13049516 (Version 1)
Quarter: 2016Q4

REPORT INFORMATION
  Report Type: Spontaneous
  Country: US (occurrence: US)
  Receive Date: 20161221
  Receipt Date: 20161221
  Transmission Date: 20170207
  Serious: No
  Sender: FDA-Public Use
  Company Number: US-009507513-1612USA003632

PATIENT
  Sex: Female

DRUGS (6)
  1. DOCUSATE SODIUM. [Concomitant]
     Active Substance: DOCUSATE SODIUM
     Dosage: 100 MG, QD
     Route: 048
  2. ATORVASTATIN [Concomitant]
     Active Substance: ATORVASTATIN
     Dosage: 10 MG, QD
     Route: 048
  3. ASPIRIN. [Concomitant]
     Active Substance: ASPIRIN
     Dosage: 81 MG, QD
     Route: 048
  4. NIFEDICAL XL [Concomitant]
     Active Substance: NIFEDIPINE
     Dosage: 60 MG, QD
     Route: 048
  5. NOVO-METOPROL [Concomitant]
     Active Substance: METOPROLOL TARTRATE
     Dosage: 25 MG, QD
     Route: 048
  6. ZEPATIER [Suspect]
     Active Substance: ELBASVIR\GRAZOPREVIR
     Indication: HEPATITIS C
     Dosage: DOSE FORM 50-100MG, 1 TABLET EVERY DAY
     Route: 048

REACTIONS (1)
  - Diarrhoea [Unknown]
